FAERS Safety Report 5897375-3 (Version None)
Quarter: 2008Q3

REPORT INFORMATION
  Report Type: 
  Country: None (occurrence: None)
  Receive Date: 20080925
  Receipt Date: 20080917
  Transmission Date: 20090109
  Serious: No
  Sender: FDA-Public Use
  Company Number: US-BAYER-200832871NA

PATIENT
  Sex: Female

DRUGS (2)
  1. BETASERON [Suspect]
     Indication: MULTIPLE SCLEROSIS
     Dates: start: 19950101
  2. UNSPECIFIED MEDICATIONS FOR MS [Concomitant]
     Indication: MULTIPLE SCLEROSIS

REACTIONS (1)
  - ADVERSE EVENT [None]
